FAERS Safety Report 4374285-4 (Version None)
Quarter: 2004Q2

REPORT INFORMATION
  Report Type: 
  Country: None (occurrence: None)
  Receive Date: 20040604
  Receipt Date: 20040526
  Transmission Date: 20050107
  Serious: Yes (Hospitalization)
  Sender: FDA-Public Use
  Company Number: US-SHR-04-021859

PATIENT
  Age: 49 Year
  Sex: Male

DRUGS (6)
  1. CAMPATH [Suspect]
     Indication: UNRELATED DONOR BONE MARROW TRANSPLANTATION THERAPY
     Dosage: 10 MG/D, D -7TO-3 (TOTAL 60MG)
     Dates: start: 20030101
  2. FLUDARA [Suspect]
     Indication: UNRELATED DONOR BONE MARROW TRANSPLANTATION THERAPY
     Dosage: 25 MG/ML2/D, DAY-5 TO (125MG/M2, INTRAVENOUS
     Route: 042
  3. GM-CSF (SARGRAMOSTIM) INJECTION) [Suspect]
     Indication: UNRELATED DONOR BONE MARROW TRANSPLANTATION THERAPY
     Dosage: 250 UG, ON DAY +3 TO STABIL ANC, SUBCUTANEOUS
     Route: 058
     Dates: start: 20031102, end: 20031113
  4. CYTOXAN [Suspect]
     Indication: UNRELATED DONOR BONE MARROW TRANSPLANTATION THERAPY
     Dosage: 45 MG/KG/DAY, DAY-4 TO-3(90MG/KG,
  5. CYCLOSPORINE [Suspect]
     Indication: PROPHYLAXIS
     Dates: start: 20031029, end: 20040106
  6. MESNA [Concomitant]

REACTIONS (6)
  - COMPLICATIONS OF BONE MARROW TRANSPLANT [None]
  - EMPHYSEMA [None]
  - INFLUENZA [None]
  - PNEUMONIA BACTERIAL [None]
  - RENAL FAILURE [None]
  - UPPER RESPIRATORY TRACT INFECTION [None]
